FAERS Safety Report 13743707 (Version 1)
Quarter: 2017Q3

REPORT INFORMATION
  Report Type: Spontaneous
  Country: GB (occurrence: GB)
  Receive Date: 20170711
  Receipt Date: 20170711
  Transmission Date: 20171127
  Serious: Yes (Hospitalization)
  Sender: FDA-Public Use
  Company Number: GB-TEVA-783965ACC

PATIENT
  Age: 56 Year
  Sex: Female

DRUGS (15)
  1. TAPENTADOL MODIFIED-RELEASE TABLET [Concomitant]
     Dosage: 50 MILLIGRAM DAILY;
  2. CLENIL MODULITE [Concomitant]
     Active Substance: BECLOMETHASONE DIPROPIONATE
     Dosage: 1-2 PUFFS 2 TIMES A DAY.
     Route: 055
  3. BETAHISTINE [Concomitant]
     Active Substance: BETAHISTINE
     Dosage: 32 MILLIGRAM DAILY;
  4. DULOXETINE. [Concomitant]
     Active Substance: DULOXETINE
     Dosage: 90 MILLIGRAM DAILY;
  5. VICTOZA [Concomitant]
     Active Substance: LIRAGLUTIDE
     Dosage: 1.2 MILLIGRAM DAILY;
  6. FUROSEMIDE. [Concomitant]
     Active Substance: FUROSEMIDE
     Dosage: 40 MILLIGRAM DAILY;
  7. TRESIBA [Concomitant]
     Active Substance: INSULIN DEGLUDEC
     Dosage: 160 IU (INTERNATIONAL UNIT) DAILY;
  8. NOVORAPID [Concomitant]
     Active Substance: INSULIN ASPART
     Dosage: 60 IU (INTERNATIONAL UNIT) DAILY;
  9. NAFTIDROFURYL [Concomitant]
     Active Substance: NAFRONYL
     Dosage: 300 MILLIGRAM DAILY;
  10. SALBUTAMOL [Concomitant]
     Active Substance: ALBUTEROL
     Dosage: 1-2 PUFFS 4 TIMES DAILY.
     Route: 055
  11. DILTIAZEM. [Concomitant]
     Active Substance: DILTIAZEM
     Dosage: 200 MILLIGRAM DAILY;
  12. LEVOTHYROXINE. [Concomitant]
     Active Substance: LEVOTHYROXINE
     Dosage: 200 MICROGRAM DAILY;
  13. OMEPRAZOLE. [Concomitant]
     Active Substance: OMEPRAZOLE
     Dosage: 40 MILLIGRAM DAILY;
  14. RAMIPRIL. [Suspect]
     Active Substance: RAMIPRIL
     Dosage: 5 MILLIGRAM DAILY;
     Route: 048
  15. ASPIRIN. [Concomitant]
     Active Substance: ASPIRIN
     Dosage: 75 MILLIGRAM DAILY;

REACTIONS (4)
  - Rash [Unknown]
  - Pruritus [Unknown]
  - Arrhythmia [Recovered/Resolved]
  - Hyperkalaemia [Recovered/Resolved]

NARRATIVE: CASE EVENT DATE: 20170319
